FAERS Safety Report 4827262-0 (Version None)
Quarter: 2005Q4

REPORT INFORMATION
  Report Type: 
  Country: None (occurrence: None)
  Receive Date: 20051114
  Receipt Date: 20051101
  Transmission Date: 20060501
  Serious: Yes (Other)
  Sender: FDA-Public Use
  Company Number: 2005AC01749

PATIENT
  Age: 27923 Day
  Sex: Male

DRUGS (2)
  1. CASODEX [Suspect]
     Indication: PROSTATE CANCER
     Route: 048
     Dates: start: 20050923
  2. SOTALOL HCL [Concomitant]
     Route: 048
     Dates: start: 19960410

REACTIONS (1)
  - ARRHYTHMIA [None]
